FAERS Safety Report 20304145 (Version 1)
Quarter: 2022Q1

REPORT INFORMATION
  Report Type: Spontaneous
  Country: JP (occurrence: JP)
  Receive Date: 20220106
  Receipt Date: 20220106
  Transmission Date: 20220423
  Serious: Yes (Other)
  Sender: FDA-Public Use
  Company Number: JP-GLAXOSMITHKLINE-JP2021GSK262733

PATIENT
  Age: 25 Year
  Sex: Female

DRUGS (1)
  1. LAMOTRIGINE [Suspect]
     Active Substance: LAMOTRIGINE
     Indication: Bipolar disorder
     Dosage: UNK

REACTIONS (14)
  - Drug reaction with eosinophilia and systemic symptoms [Recovered/Resolved]
  - Pyrexia [Recovered/Resolved]
  - Rash [Recovered/Resolved]
  - Face oedema [Recovered/Resolved]
  - Lymph node palpable [Recovered/Resolved]
  - Lymph node pain [Recovered/Resolved]
  - Eczema [Recovered/Resolved]
  - Lymphocytic infiltration [Recovered/Resolved]
  - Eosinophilia [Recovered/Resolved]
  - White blood cell count increased [Recovered/Resolved]
  - Lymphocytosis [Recovered/Resolved]
  - C-reactive protein increased [Recovered/Resolved]
  - Interleukin-2 receptor increased [Recovered/Resolved]
  - Thymus disorder [Recovered/Resolved]
